FAERS Safety Report 8196195-7 (Version None)
Quarter: 2012Q1

REPORT INFORMATION
  Report Type: 
  Country: None (occurrence: None)
  Receive Date: 20120306
  Receipt Date: 20120222
  Transmission Date: 20120608
  Serious: Yes (Hospitalization)
  Sender: FDA-Public Use
  Company Number: TPA2011A00698

PATIENT
  Age: 77 Year
  Sex: Female

DRUGS (2)
  1. ULORIC [Suspect]
     Indication: GOUT
     Dosage: 80 MG (80 MG, 1 IN 1 D),
     Dates: start: 20101103, end: 20110202
  2. WARFARIN SODIUM [Concomitant]

REACTIONS (2)
  - SKIN NECROSIS [None]
  - SKIN LESION [None]
